FAERS Safety Report 21456040 (Version 3)
Quarter: 2022Q4

REPORT INFORMATION
  Report Type: Spontaneous
  Country: US (occurrence: US)
  Receive Date: 20221014
  Receipt Date: 20221214
  Transmission Date: 20230113
  Serious: No
  Sender: FDA-Public Use
  Company Number: None

PATIENT
  Sex: Female

DRUGS (1)
  1. RECTASMOOTHE [Suspect]
     Active Substance: LIDOCAINE
     Indication: Haemorrhoids
     Route: 054

REACTIONS (1)
  - Drug ineffective [Unknown]
